FAERS Safety Report 7602977-X (Version None)
Quarter: 2011Q3

REPORT INFORMATION
  Report Type: 
  Country: None (occurrence: None)
  Receive Date: 20110712
  Receipt Date: 20110511
  Transmission Date: 20111222
  Serious: No
  Sender: FDA-Public Use
  Company Number: A0926992A

PATIENT
  Age: 58 Year
  Sex: Male

DRUGS (3)
  1. JALYN [Suspect]
     Indication: BENIGN PROSTATIC HYPERPLASIA
     Route: 048
     Dates: start: 20110502, end: 20110507
  2. AMLODIPINE [Concomitant]
  3. DIOVAN [Concomitant]

REACTIONS (2)
  - BLOOD PRESSURE DECREASED [None]
  - EJACULATION DISORDER [None]
